FAERS Safety Report 20370409 (Version 3)
Quarter: 2022Q1

REPORT INFORMATION
  Report Type: Spontaneous
  Country: US (occurrence: US)
  Receive Date: 20220124
  Receipt Date: 20220315
  Transmission Date: 20220423
  Serious: Yes (Other)
  Sender: FDA-Public Use
  Company Number: US-PFIZER INC-202101521426

PATIENT
  Age: 48 Year
  Sex: Female
  Weight: 56.689 kg

DRUGS (7)
  1. IBRANCE [Suspect]
     Active Substance: PALBOCICLIB
     Indication: Breast cancer female
     Dosage: 100 MG, CYCLIC (1 DAILY FOR 21 DAYS/1 CAPSULE DAILY ON DAYS 1 THROUGH 21)
     Route: 048
     Dates: start: 20210927
  2. XANAX [Concomitant]
     Active Substance: ALPRAZOLAM
     Dosage: 1 MG, UNK
  3. VITAMIN D2 [Concomitant]
     Active Substance: ERGOCALCIFEROL
     Dosage: 1225 MG, UNK
  4. CALCIUM [Concomitant]
     Active Substance: CALCIUM
     Dosage: 500(1250), UNK
  5. CELEBREX [Concomitant]
     Active Substance: CELECOXIB
     Dosage: 100 MG, UNK
  6. FULVESTRANT [Concomitant]
     Active Substance: FULVESTRANT
     Dosage: 250 MG/5 ML, UNK
  7. XGEVA [Concomitant]
     Active Substance: DENOSUMAB
     Dosage: 120 MG/1.7 VIAL

REACTIONS (7)
  - Osteomyelitis [Unknown]
  - Dizziness [Unknown]
  - Vision blurred [Unknown]
  - Hypersomnia [Unknown]
  - Sleep disorder [Unknown]
  - Mouth ulceration [Unknown]
  - Jaw disorder [Unknown]

NARRATIVE: CASE EVENT DATE: 20210101
